FAERS Safety Report 7808694-5 (Version None)
Quarter: 2011Q4

REPORT INFORMATION
  Report Type: 
  Country: None (occurrence: None)
  Receive Date: 20111012
  Receipt Date: 20111004
  Transmission Date: 20120403
  Serious: Yes (Hospitalization)
  Sender: FDA-Public Use
  Company Number: US-ASTELLAS-2011US005673

PATIENT
  Sex: Male
  Weight: 60 kg

DRUGS (20)
  1. XOPENEX HFA [Concomitant]
     Indication: PRODUCT USED FOR UNKNOWN INDICATION
     Dosage: UNK
     Route: 065
     Dates: start: 20040101
  2. COMPAZINE [Concomitant]
     Indication: PRODUCT USED FOR UNKNOWN INDICATION
     Dosage: UNK
     Route: 065
     Dates: start: 20110524
  3. ERLOTINIB HYDROCHLORIDE [Suspect]
     Indication: LARYNGEAL CANCER METASTATIC
     Dosage: 100 MG, UNKNOWN/D
     Route: 048
     Dates: start: 20110524, end: 20110918
  4. ADVAIR DISKUS 100/50 [Concomitant]
     Indication: PRODUCT USED FOR UNKNOWN INDICATION
     Dosage: UNK
     Route: 065
     Dates: start: 20040101
  5. MIRALAX [Concomitant]
     Dosage: UNK
     Route: 065
     Dates: start: 20110511
  6. SENOKOT [Concomitant]
     Indication: PRODUCT USED FOR UNKNOWN INDICATION
     Dosage: UNK
     Route: 065
     Dates: start: 20110511
  7. CETUXIMAB [Suspect]
     Indication: LARYNGEAL CANCER METASTATIC
     Dosage: 442 MG, UNKNOWN/D
     Route: 042
     Dates: start: 20110524, end: 20110918
  8. DULCOLAX [Concomitant]
     Indication: PRODUCT USED FOR UNKNOWN INDICATION
     Dosage: UNK
     Route: 065
     Dates: start: 20110511
  9. AMBIEN [Concomitant]
     Indication: PRODUCT USED FOR UNKNOWN INDICATION
     Dosage: UNK
     Route: 065
     Dates: start: 20110712
  10. PACLITAXEL [Suspect]
     Indication: LARYNGEAL CANCER METASTATIC
     Dosage: 143 MG, WEEKLY
     Route: 042
     Dates: start: 20110524, end: 20110918
  11. CARBOPLATIN [Suspect]
     Indication: LARYNGEAL CANCER METASTATIC
     Dosage: 145 MG, WEEKLY
     Route: 042
     Dates: start: 20110524, end: 20110918
  12. OXYCODONE HCL [Concomitant]
     Indication: PRODUCT USED FOR UNKNOWN INDICATION
     Dosage: UNK
     Route: 065
     Dates: start: 20101201
  13. SIMVASTATIN [Concomitant]
     Indication: PRODUCT USED FOR UNKNOWN INDICATION
     Dosage: UNK
     Route: 065
     Dates: start: 20040101
  14. OXYCONTIN [Concomitant]
     Indication: PRODUCT USED FOR UNKNOWN INDICATION
     Dosage: UNK
     Route: 065
     Dates: start: 20101201
  15. AGGRENOX [Concomitant]
     Indication: PRODUCT USED FOR UNKNOWN INDICATION
     Dosage: UNK
     Route: 065
     Dates: start: 20040101
  16. VALIUM [Concomitant]
     Indication: PRODUCT USED FOR UNKNOWN INDICATION
     Dosage: UNK
     Route: 065
     Dates: start: 20110125
  17. EFFEXOR [Concomitant]
     Indication: PRODUCT USED FOR UNKNOWN INDICATION
     Dosage: UNK
     Route: 065
     Dates: start: 20110712
  18. ONDANSETRON [Concomitant]
     Indication: PRODUCT USED FOR UNKNOWN INDICATION
     Dosage: UNK
     Route: 065
     Dates: start: 20110524
  19. HYDROCORTISONE [Concomitant]
     Indication: PRODUCT USED FOR UNKNOWN INDICATION
     Dosage: UNK
     Route: 065
     Dates: start: 20110531
  20. METOMIDAZOLE [Concomitant]
     Indication: PRODUCT USED FOR UNKNOWN INDICATION
     Dosage: UNK
     Route: 065
     Dates: start: 20110712

REACTIONS (4)
  - NEOPLASM MALIGNANT [None]
  - UROSEPSIS [None]
  - OFF LABEL USE [None]
  - FEBRILE NEUTROPENIA [None]
